FAERS Safety Report 22192799 (Version 2)
Quarter: 2023Q2

REPORT INFORMATION
  Report Type: Spontaneous
  Country: GB (occurrence: GB)
  Receive Date: 20230410
  Receipt Date: 20230515
  Transmission Date: 20230722
  Serious: Yes (Hospitalization, Other)
  Sender: FDA-Public Use
  Company Number: None

PATIENT
  Age: 63 Year

DRUGS (22)
  1. BACLOFEN [Suspect]
     Active Substance: BACLOFEN
     Indication: Product used for unknown indication
     Dosage: UNK
     Route: 065
  2. DIAZEPAM [Suspect]
     Active Substance: DIAZEPAM
     Indication: Product used for unknown indication
     Dosage: UNK
     Route: 065
  3. LISINOPRIL [Suspect]
     Active Substance: LISINOPRIL
     Indication: Product used for unknown indication
     Dosage: UNK
     Route: 065
  4. METFORMIN [Suspect]
     Active Substance: METFORMIN HYDROCHLORIDE
     Indication: Product used for unknown indication
     Dosage: UNK
     Route: 065
  5. OMEPRAZOLE [Suspect]
     Active Substance: OMEPRAZOLE
     Indication: Product used for unknown indication
     Dosage: UNK
     Route: 065
  6. QUETIAPINE [Suspect]
     Active Substance: QUETIAPINE
     Indication: Product used for unknown indication
     Dosage: UNK
     Route: 065
  7. SERTRALINE [Suspect]
     Active Substance: SERTRALINE HYDROCHLORIDE
     Indication: Product used for unknown indication
     Dosage: UNK
     Route: 065
  8. SIMVASTATIN [Suspect]
     Active Substance: SIMVASTATIN
     Indication: Product used for unknown indication
     Dosage: UNK
     Route: 065
  9. ZOPICLONE [Suspect]
     Active Substance: ZOPICLONE
     Indication: Product used for unknown indication
     Dosage: UNK
     Route: 065
  10. ZOPICLONE [Suspect]
     Active Substance: ZOPICLONE
     Dosage: UNK
     Route: 065
  11. ZOPICLONE [Suspect]
     Active Substance: ZOPICLONE
     Dosage: UNK
     Route: 065
  12. ZOPICLONE [Suspect]
     Active Substance: ZOPICLONE
     Dosage: UNK
     Route: 065
  13. ZOPICLONE [Suspect]
     Active Substance: ZOPICLONE
     Dosage: UNK
     Route: 065
  14. ZOPICLONE [Suspect]
     Active Substance: ZOPICLONE
     Dosage: UNK
     Route: 065
  15. ZOPICLONE [Suspect]
     Active Substance: ZOPICLONE
     Dosage: UNK
     Route: 065
  16. ZOPICLONE [Suspect]
     Active Substance: ZOPICLONE
     Dosage: UNK
     Route: 065
  17. ZOPICLONE [Suspect]
     Active Substance: ZOPICLONE
     Dosage: UNK
     Route: 065
  18. ZOPICLONE [Suspect]
     Active Substance: ZOPICLONE
     Dosage: UNK
     Route: 065
  19. ZOPICLONE [Suspect]
     Active Substance: ZOPICLONE
     Dosage: UNK
     Route: 065
  20. ACETAMINOPHEN [Suspect]
     Active Substance: ACETAMINOPHEN
     Indication: Product used for unknown indication
     Dosage: 8 MILLIGRAM (TOTAL)
     Route: 065
  21. THIAMINE [Suspect]
     Active Substance: THIAMINE
     Indication: Product used for unknown indication
     Dosage: UNK
     Route: 065
  22. ACAMPROSATE [Concomitant]
     Active Substance: ACAMPROSATE
     Dosage: UNK
     Route: 065

REACTIONS (2)
  - Unresponsive to stimuli [Unknown]
  - Overdose [Unknown]
